FAERS Safety Report 6258897-9 (Version None)
Quarter: 2009Q3

REPORT INFORMATION
  Report Type: 
  Country: None (occurrence: None)
  Receive Date: 20090702
  Receipt Date: 20090618
  Transmission Date: 20100115
  Serious: Yes (Other)
  Sender: FDA-Public Use
  Company Number: US-1170003

PATIENT
  Age: 75 Year
  Sex: Male
  Weight: 83.9154 kg

DRUGS (9)
  1. ISOPTO CARBACHOL 3 % OPHTHALMIC SOLUTION [Suspect]
     Indication: POSTOPERATIVE CARE
     Dosage: 1 GTT IMMEDIATELY POST-OP OPHTHALMIC
     Route: 047
     Dates: start: 20090610, end: 20090610
  2. VERSED [Concomitant]
  3. BSS [Concomitant]
  4. FENTANYL [Concomitant]
  5. XYLOCAINE [Concomitant]
  6. EPINEPHRINE [Concomitant]
  7. DUOVISC [Concomitant]
  8. PROPOFOL [Concomitant]
  9. LODOCAINE [Concomitant]

REACTIONS (4)
  - BLOOD PRESSURE DECREASED [None]
  - HYPERHIDROSIS [None]
  - NAUSEA [None]
  - OXYGEN SATURATION DECREASED [None]
